FAERS Safety Report 6267522-2 (Version None)
Quarter: 2009Q3

REPORT INFORMATION
  Report Type: 
  Country: None (occurrence: None)
  Receive Date: 20090714
  Receipt Date: 20090708
  Transmission Date: 20100115
  Serious: Yes (Hospitalization)
  Sender: FDA-Public Use
  Company Number: US-JNJFOC-20090703254

PATIENT
  Age: 62 Year
  Sex: Female

DRUGS (3)
  1. MOTRIN IB [Suspect]
     Route: 048
  2. MOTRIN IB [Suspect]
     Indication: HEADACHE
     Dosage: DOSE AND FREQUENCY UNKNOWN, AS NEEDED
     Route: 048
  3. ALEVE [Suspect]
     Indication: HEADACHE
     Dosage: DOSE AND FREQUENCY UNKNOWN, AS NEEDED

REACTIONS (1)
  - RENAL FAILURE [None]
